FAERS Safety Report 6072983-8 (Version None)
Quarter: 2009Q1

REPORT INFORMATION
  Report Type: 
  Country: None (occurrence: None)
  Receive Date: 20090205
  Receipt Date: 20081125
  Transmission Date: 20090719
  Serious: Yes (Other)
  Sender: FDA-Public Use
  Company Number: 3-1108-31

PATIENT
  Age: 80 Year
  Sex: Female

DRUGS (3)
  1. DERMA-SMOOTHE/FS [Suspect]
     Indication: DRY SKIN
     Dosage: TOPICAL
     Route: 061
  2. DERMA-SMOOTHE/FS [Suspect]
     Indication: PRURITUS
     Dosage: TOPICAL
     Route: 061
  3. DERMA-SMOOTHE/FS [Suspect]
     Indication: RASH
     Dosage: TOPICAL
     Route: 061

REACTIONS (1)
  - DIARRHOEA [None]
